FAERS Safety Report 9772837 (Version 1)
Quarter: 2013Q4

REPORT INFORMATION
  Report Type: Spontaneous
  Country: FR (occurrence: FR)
  Receive Date: 20131219
  Receipt Date: 20131219
  Transmission Date: 20140711
  Serious: Yes (Hospitalization)
  Sender: FDA-Public Use
  Company Number: FR-PFIZER INC-2013360568

PATIENT
  Age: 60 Year
  Sex: Female

DRUGS (5)
  1. AROMASINE [Suspect]
     Dosage: 25 MG, 1X/DAY
     Route: 048
     Dates: start: 20130823
  2. PNEUMO 23 [Suspect]
     Indication: IMMUNISATION
     Dosage: 1 DF, SINGLE
     Route: 030
     Dates: start: 20130924, end: 20130924
  3. AVASTIN [Suspect]
     Dosage: UNK
     Route: 042
     Dates: start: 20120827, end: 20130524
  4. AVASTIN [Suspect]
     Dosage: CYCLIC ADMINISTRATION
     Route: 042
     Dates: start: 20130621, end: 20130913
  5. LEVOTHYROX [Concomitant]
     Dosage: UNK

REACTIONS (1)
  - Cerebellar syndrome [Recovered/Resolved]
